FAERS Safety Report 10466341 (Version 2)
Quarter: 2014Q4

REPORT INFORMATION
  Report Type: Spontaneous
  Country: US (occurrence: None)
  Receive Date: 20140918
  Receipt Date: 20141023
  Transmission Date: 20150528
  Serious: Yes (Hospitalization)
  Sender: FDA-Public Use
  Company Number: 2014STPI000418

PATIENT
  Age: 28 Year
  Weight: 69.4 kg

DRUGS (30)
  1. OMEPRAZOLE ACID REDUCER (OMEPRAZOLE) [Concomitant]
  2. PREDNISONE (PREDNISONE) [Suspect]
     Active Substance: PREDNISONE
     Indication: ACUTE LYMPHOCYTIC LEUKAEMIA
     Route: 048
     Dates: start: 20140428
  3. ACYCLOVIR (ACYCLOVIR) [Concomitant]
     Active Substance: ACYCLOVIR
  4. NYQUIL (DEXTROMETHORPHAN HYDROBROMIDE, DOXYLAMINE SUCCINATE, EPHEDRINE SULFATE, ETHANOL PARACETAMOL) [Concomitant]
  5. FLUTICASXONE PROPIONATE (FLUTICASONE PROPIONATE) [Concomitant]
  6. BACTRIM [Concomitant]
     Active Substance: SULFAMETHOXAZOLE\TRIMETHOPRIM
  7. VINCRISTINE SULFATE (VINCRISTINE SULFATE) [Suspect]
     Active Substance: VINCRISTINE SULFATE
     Indication: ACUTE LYMPHOCYTIC LEUKAEMIA
     Route: 042
     Dates: start: 20140428
  8. ALLOPURINOL (ALLOPURINOL) [Concomitant]
     Active Substance: ALLOPURINOL
  9. CAPSAICIN (CAPSAICIN) [Concomitant]
  10. MUPIROCIN (MUPIROCIN) [Concomitant]
     Active Substance: MUPIROCIN
  11. MERCAPTOPURINE (MERCAPTOPURINE) [Suspect]
     Active Substance: MERCAPTOPURINE
     Indication: ACUTE LYMPHOCYTIC LEUKAEMIA
     Route: 048
     Dates: start: 20140603, end: 20140616
  12. MIRALAX (MACROGOL) [Concomitant]
  13. OXYCODONE (OXYCODONE HYDROCHLORIDE) [Concomitant]
  14. METHOTREXATE SODIUM (METHOTREXATE SODIUM) [Suspect]
     Active Substance: METHOTREXATE SODIUM
     Indication: ACUTE LYMPHOCYTIC LEUKAEMIA
     Dates: start: 20140603, end: 20140603
  15. HYDROCORTISONE (HYDROCORTISONE ACETATE) [Concomitant]
     Active Substance: HYDROCORTISONE ACETATE
  16. LORAZEPAM (LORAZEPAM) [Concomitant]
     Active Substance: LORAZEPAM
  17. PROCHLORPERAZINE MALEATE (PROCHLORPERAZINE MALEATE) [Concomitant]
     Active Substance: PROCHLORPERAZINE MALEATE
  18. ONCASPAR [Suspect]
     Active Substance: PEGASPARGASE
     Indication: ACUTE LYMPHOCYTIC LEUKAEMIA
     Route: 042
     Dates: start: 20140715, end: 20140715
  19. CYTARABINE (CYTARABINE) [Suspect]
     Active Substance: CYTARABINE
     Indication: ACUTE LYMPHOCYTIC LEUKAEMIA
     Route: 042
     Dates: start: 20140603, end: 20140606
  20. SOLU-CORTEF (HYDROCORTISONE SODIUM SUCCINATE) [Concomitant]
  21. MICAFUNGIN SODIUM (MICAFUNGIN SODIUM) [Concomitant]
  22. POTASSIUM CHLORIDE (POTASSIUM CHLORIDE) [Concomitant]
     Active Substance: POTASSIUM CHLORIDE
  23. CYCLOPHOSPHAMIDE (CYCLOPHOSPHAMIDE) [Suspect]
     Active Substance: CYCLOPHOSPHAMIDE
     Indication: ACUTE LYMPHOCYTIC LEUKAEMIA
     Route: 042
     Dates: start: 20140603, end: 20140603
  24. ACETAMINOPHEN (PARACETAMOL) [Concomitant]
     Active Substance: ACETAMINOPHEN
  25. FILGRASTIM (FILGRASTIM) [Concomitant]
     Active Substance: FILGRASTIM
  26. FLECTOR EP (DICLOFENAC EPOLAMINE) [Concomitant]
  27. IBUPROFEN (IBUPROFEN) [Concomitant]
     Active Substance: IBUPROFEN
  28. ONDANSETRON. [Concomitant]
     Active Substance: ONDANSETRON
  29. PANTOPRAZOLE SODIUM (PANTOPRAZOLE SODIUM SESQUIHYDRATE) [Concomitant]
  30. SENNAX PLUS (DOCUSATE SODIUM, SENNOSIDE A+B) [Concomitant]

REACTIONS (9)
  - Fall [None]
  - Lung abscess [None]
  - Paraesthesia [None]
  - Anorectal infection [None]
  - Febrile neutropenia [None]
  - Neuropathy peripheral [None]
  - Thrombocytopenia [None]
  - Proctalgia [None]
  - Pneumothorax [None]

NARRATIVE: CASE EVENT DATE: 20140902
